FAERS Safety Report 10474019 (Version 1)
Quarter: 2014Q3

REPORT INFORMATION
  Report Type: Spontaneous
  Country: US (occurrence: US)
  Receive Date: 20140924
  Receipt Date: 20140924
  Transmission Date: 20150326
  Serious: Yes (Hospitalization)
  Sender: FDA-Public Use
  Company Number: US-GLAXOSMITHKLINE-A1090490A

PATIENT
  Age: 76 Year
  Sex: Male

DRUGS (12)
  1. TRAMADOL [Concomitant]
     Active Substance: TRAMADOL
  2. FLECAINIDE [Concomitant]
     Active Substance: FLECAINIDE
  3. ADVAIR HFA [Suspect]
     Active Substance: FLUTICASONE PROPIONATE\SALMETEROL XINAFOATE
     Indication: CHRONIC OBSTRUCTIVE PULMONARY DISEASE
     Route: 065
     Dates: start: 20140919
  4. NEBULIZER [Concomitant]
     Active Substance: UNSPECIFIED INGREDIENT
  5. IRON [Concomitant]
     Active Substance: IRON
  6. ADVAIR HFA [Suspect]
     Active Substance: FLUTICASONE PROPIONATE\SALMETEROL XINAFOATE
     Indication: PRODUCT USED FOR UNKNOWN INDICATION
     Route: 065
  7. JALYN [Concomitant]
     Active Substance: DUTASTERIDE\TAMSULOSIN HYDROCHLORIDE
  8. VITAMINS [Concomitant]
     Active Substance: VITAMINS
  9. PREDNISONE. [Concomitant]
     Active Substance: PREDNISONE
  10. NEXIUM [Concomitant]
     Active Substance: ESOMEPRAZOLE MAGNESIUM
  11. PROVENTIL [Concomitant]
     Active Substance: ALBUTEROL
  12. ASPIRIN. [Concomitant]
     Active Substance: ASPIRIN

REACTIONS (11)
  - Cholecystitis infective [Unknown]
  - Cardiac failure congestive [Unknown]
  - Decreased appetite [Recovering/Resolving]
  - Chronic obstructive pulmonary disease [Unknown]
  - Expired product administered [Unknown]
  - Urinary tract infection [Unknown]
  - Renal failure [Unknown]
  - Renal disorder [Unknown]
  - Weight decreased [Recovering/Resolving]
  - Drug dose omission [Unknown]
  - Fall [Unknown]
